FAERS Safety Report 24271087 (Version 2)
Quarter: 2024Q3

REPORT INFORMATION
  Report Type: Spontaneous
  Country: FI (occurrence: FI)
  Receive Date: 20240831
  Receipt Date: 20240920
  Transmission Date: 20241016
  Serious: Yes (Hospitalization)
  Sender: UNITED THERAPEUTICS
  Company Number: FI-UNITED THERAPEUTICS-UNT-2024-027042

PATIENT

DRUGS (1)
  1. REMODULIN [Suspect]
     Active Substance: TREPROSTINIL
     Indication: Pulmonary arterial hypertension
     Dosage: UNK, CONTINUING
     Route: 041

REACTIONS (3)
  - Incorrect drug administration rate [Recovered/Resolved]
  - Device occlusion [Not Recovered/Not Resolved]
  - Device breakage [Unknown]
